FAERS Safety Report 7972552-6 (Version None)
Quarter: 2011Q4

REPORT INFORMATION
  Report Type: 
  Country: None (occurrence: None)
  Receive Date: 20111213
  Receipt Date: 20111130
  Transmission Date: 20120403
  Serious: Yes (Other)
  Sender: FDA-Public Use
  Company Number: US-ELI_LILLY_AND_COMPANY-US201112001088

PATIENT
  Sex: Male

DRUGS (2)
  1. HUMATROPE [Suspect]
     Indication: HYPOPITUITARISM
     Dosage: 0.2 - 0.4 MG, QD
  2. HUMATROPE [Suspect]
     Dosage: 0.6 -0.8 MG

REACTIONS (6)
  - PITUITARY TUMOUR RECURRENT [None]
  - BENIGN NEOPLASM OF PROSTATE [None]
  - INTENTIONAL OVERDOSE [None]
  - COLONIC POLYP [None]
  - INSULIN-LIKE GROWTH FACTOR INCREASED [None]
  - SELF-MEDICATION [None]
